FAERS Safety Report 24382121 (Version 2)
Quarter: 2024Q4

REPORT INFORMATION
  Report Type: Spontaneous
  Country: CA (occurrence: CA)
  Receive Date: 20241001
  Receipt Date: 20241129
  Transmission Date: 20250115
  Serious: Yes (Other)
  Sender: CELLTRION
  Company Number: CA-PFIZER INC-PV202400124150

PATIENT

DRUGS (1)
  1. INFLECTRA [Suspect]
     Active Substance: INFLIXIMAB-DYYB
     Indication: Adenosine deaminase 2 deficiency
     Dosage: 1000 MG Q6WEEKS
     Route: 042

REACTIONS (5)
  - Adenosine deaminase 2 deficiency [Unknown]
  - Disease recurrence [Unknown]
  - Petit mal epilepsy [Unknown]
  - Drug effective for unapproved indication [Unknown]
  - Off label use [Unknown]

NARRATIVE: CASE EVENT DATE: 20230101
